FAERS Safety Report 24543162 (Version 1)
Quarter: 2024Q4

REPORT INFORMATION
  Report Type: Spontaneous
  Country: SA (occurrence: SA)
  Receive Date: 20241024
  Receipt Date: 20241024
  Transmission Date: 20250114
  Serious: Yes (Other)
  Sender: RANBAXY
  Company Number: SA-SUN PHARMACEUTICAL INDUSTRIES LTD-2024R1-474695

PATIENT
  Age: 37 Year
  Sex: Male

DRUGS (1)
  1. CYPROTERONE ACETATE\ETHINYL ESTRADIOL [Suspect]
     Active Substance: CYPROTERONE ACETATE\ETHINYL ESTRADIOL
     Indication: Hair growth abnormal
     Dosage: UNK
     Route: 061

REACTIONS (1)
  - Cerebral venous thrombosis [Unknown]
